FAERS Safety Report 5091047-3 (Version None)
Quarter: 2006Q3

REPORT INFORMATION
  Report Type: 
  Country: None (occurrence: None)
  Receive Date: 20060829
  Receipt Date: 20051103
  Transmission Date: 20061208
  Serious: No
  Sender: FDA-Public Use
  Company Number: US-GLAXOSMITHKLINE-A0580820A

PATIENT
  Age: 68 Year
  Sex: Female
  Weight: 47.3 kg

DRUGS (5)
  1. ZOVIRAX [Suspect]
     Indication: HERPES ZOSTER
     Route: 048
  2. COZAAR [Concomitant]
  3. METOPROLOL TARTRATE [Concomitant]
  4. AGGRENOX [Concomitant]
  5. UNKNOWN MEDICATION [Concomitant]
     Indication: BLOOD CHOLESTEROL INCREASED

REACTIONS (1)
  - ERYTHEMA [None]
